FAERS Safety Report 6780942-2 (Version None)
Quarter: 2010Q2

REPORT INFORMATION
  Report Type: 
  Country: None (occurrence: None)
  Receive Date: 20100615
  Receipt Date: 20100602
  Transmission Date: 20101027
  Serious: Yes (Other)
  Sender: FDA-Public Use
  Company Number: 430002L08ESP

PATIENT
  Age: 23 Year
  Sex: Male

DRUGS (1)
  1. MITOXANTRONE [Suspect]
     Indication: MULTIPLE SCLEROSIS
     Dosage: 10 MG/M2, 1 IN 1 M; 10 MG/M2, 1 IN 3 M
     Dates: start: 20041001, end: 20050101

REACTIONS (5)
  - ACUTE PROMYELOCYTIC LEUKAEMIA [None]
  - CONTUSION [None]
  - OROPHARYNGEAL PAIN [None]
  - PANCYTOPENIA [None]
  - PYREXIA [None]
